FAERS Safety Report 9880500 (Version 1)
Quarter: 2014Q1

REPORT INFORMATION
  Report Type: Spontaneous
  Country: BE (occurrence: None)
  Receive Date: 20140205
  Receipt Date: 20140205
  Transmission Date: 20141002
  Serious: Yes (Life-Threatening, Hospitalization)
  Sender: FDA-Public Use
  Company Number: DSM-2014-00085

PATIENT
  Age: 61 Year
  Sex: Male
  Weight: 180 kg

DRUGS (8)
  1. OLMETEC [Suspect]
     Indication: HYPERTENSION
     Route: 048
     Dates: start: 2011, end: 201306
  2. MOXON (MONONIDINE) (0.4 MILLIGRAM, TABLET) (MONONIDINE) [Concomitant]
     Indication: OEDEMA PERIPHERAL
     Route: 048
     Dates: start: 2011, end: 201306
  3. METFORMAX (METFORMIN HYDROCHLORIDE) (850 MILLIGRAM, TABLET) (METFORMIN HYDROCHLORIDE) [Concomitant]
  4. NOVORAPID (INSULIN ASPART) (INJECTION) (INSULIN ASPART) [Concomitant]
  5. LANTUS (INSULIN GLARGINE) (INSULIN GLARGINE) [Concomitant]
  6. INEGY (SIMVASTATIN, EZETIMIBE) (TABLET) (SIMVASTATIN, EZETIMIBE) [Concomitant]
  7. ELTHYRONE (LEVOTHYROXINE SODIUM) (300 MILLIGRAM, TABLET) (LEVOTHYROXINE SODIUM) [Concomitant]
  8. LYRICA (PREGABLIN) (300 MILLIGRAM, CAPSULE) (PREGABALIN) [Concomitant]

REACTIONS (5)
  - Renal failure acute [None]
  - Hyperkalaemia [None]
  - Fatigue [None]
  - Malaise [None]
  - Fall [None]
